FAERS Safety Report 4505796-6 (Version None)
Quarter: 2004Q4

REPORT INFORMATION
  Report Type: 
  Country: None (occurrence: None)
  Receive Date: 20041025
  Receipt Date: 20040319
  Transmission Date: 20050328
  Serious: Yes (Hospitalization)
  Sender: FDA-Public Use
  Company Number: US-JNJFOC-20031202407

PATIENT
  Age: 45 Year
  Sex: Female
  Weight: 53.5244 kg

DRUGS (9)
  1. REMICADE [Suspect]
     Indication: ANKYLOSING SPONDYLITIS
     Dosage: 300 MG, 1 IN 6 WEEK, INTRAVENOUS
     Route: 042
     Dates: end: 20030316
  2. VICODIN [Concomitant]
  3. NEXIUM [Concomitant]
  4. ANTIBIOTICS (ANTIBIOTICS) [Concomitant]
  5. RELAFIN (NABUMETONE) [Concomitant]
  6. INDOCIN [Concomitant]
  7. IRON SUPPLEMENT (IRON) [Concomitant]
  8. VITAMINS (VITAMINS) [Concomitant]
  9. CALCIUM (CALCIUM) [Concomitant]

REACTIONS (1)
  - URINARY TRACT INFECTION [None]
